FAERS Safety Report 10184034 (Version 1)
Quarter: 2014Q2

REPORT INFORMATION
  Report Type: Spontaneous
  Country: FR (occurrence: FR)
  Receive Date: 20140520
  Receipt Date: 20140520
  Transmission Date: 20141212
  Serious: Yes (Life-Threatening, Hospitalization)
  Sender: FDA-Public Use
  Company Number: FR-GLAXOSMITHKLINE-B0994172A

PATIENT
  Age: 74 Year
  Sex: Male

DRUGS (4)
  1. HYCAMTIN [Suspect]
     Indication: PRODUCT USED FOR UNKNOWN INDICATION
     Route: 042
     Dates: start: 20140318
  2. NEBIVOLOL [Concomitant]
     Route: 048
  3. PRAVASTATINE [Concomitant]
     Dosage: 20MG PER DAY
     Route: 048
  4. XATRAL LP [Concomitant]
     Dosage: 10MG PER DAY
     Route: 048

REACTIONS (4)
  - Acute pulmonary oedema [Recovered/Resolved]
  - Neutropenia [Recovered/Resolved]
  - Thrombocytopenia [Recovered/Resolved]
  - Troponin increased [Recovered/Resolved]
